FAERS Safety Report 4841411-X (Version None)
Quarter: 2005Q4

REPORT INFORMATION
  Report Type: 
  Country: None (occurrence: None)
  Receive Date: 20051130
  Receipt Date: 20051117
  Transmission Date: 20060501
  Serious: Yes (Other)
  Sender: FDA-Public Use
  Company Number: JP-MERCK-0511USA03391

PATIENT
  Age: 75 Year
  Sex: Male
  Weight: 49 kg

DRUGS (6)
  1. PEPCID [Suspect]
     Route: 030
  2. ATROPINE [Concomitant]
     Route: 030
  3. MEPERIDINE HYDROCHLORIDE [Concomitant]
     Route: 030
  4. SEVOFLURANE [Concomitant]
     Route: 065
  5. THIOPENTAL SODIUM [Concomitant]
     Route: 065
  6. VECURONIUM BROMIDE [Concomitant]
     Route: 065

REACTIONS (6)
  - ARTERIOSPASM CORONARY [None]
  - ATRIOVENTRICULAR BLOCK COMPLETE [None]
  - BLOOD PRESSURE FLUCTUATION [None]
  - ELECTROCARDIOGRAM QRS COMPLEX PROLONGED [None]
  - SINUS ARREST [None]
  - VENTRICULAR EXTRASYSTOLES [None]
